FAERS Safety Report 23797428 (Version 2)
Quarter: 2024Q2

REPORT INFORMATION
  Report Type: Report from Study
  Country: ES (occurrence: ES)
  Receive Date: 20240430
  Receipt Date: 20240612
  Transmission Date: 20240716
  Serious: Yes (Disabling)
  Sender: FDA-Public Use
  Company Number: ES-TEVA-VS-3181277

PATIENT
  Age: 81 Year
  Sex: Female

DRUGS (4)
  1. TERIPARATIDE [Suspect]
     Active Substance: TERIPARATIDE
     Indication: Osteoporosis
     Dosage: 20MCG/80MCL
     Route: 065
     Dates: start: 20240221
  2. ACETAMINOPHEN [Concomitant]
     Active Substance: ACETAMINOPHEN
     Indication: Pain
     Dosage: START DATE: LONG AGO
  3. SIMVASTATIN [Concomitant]
     Active Substance: SIMVASTATIN
     Indication: Hypercholesterolaemia
     Dosage: START DATE: LONG AGO
  4. ZOLPIDEM [Concomitant]
     Active Substance: ZOLPIDEM TARTRATE
     Indication: Insomnia
     Dosage: START DATE: LONG AGO

REACTIONS (5)
  - Pain in extremity [Not Recovered/Not Resolved]
  - Asthenia [Not Recovered/Not Resolved]
  - Fatigue [Not Recovered/Not Resolved]
  - Sluggishness [Not Recovered/Not Resolved]
  - Laziness [Not Recovered/Not Resolved]

NARRATIVE: CASE EVENT DATE: 20240221
